FAERS Safety Report 14733214 (Version 1)
Quarter: 2018Q2

REPORT INFORMATION
  Report Type: Spontaneous
  Country: TR (occurrence: TR)
  Receive Date: 20180409
  Receipt Date: 20180409
  Transmission Date: 20180711
  Serious: Yes (Other)
  Sender: FDA-Public Use
  Company Number: PHHY2018TR045823

PATIENT
  Age: 25 Year
  Sex: Female

DRUGS (3)
  1. SANDIMMUN [Suspect]
     Active Substance: CYCLOSPORINE
     Indication: PRODUCT USED FOR UNKNOWN INDICATION
     Route: 065
  2. INFLIXIMAB [Suspect]
     Active Substance: INFLIXIMAB
     Indication: PYODERMA GANGRENOSUM
     Dosage: UNK
     Route: 065
  3. METHOTREXATE. [Suspect]
     Active Substance: METHOTREXATE
     Indication: PYODERMA GANGRENOSUM
     Dosage: UNK
     Route: 065

REACTIONS (5)
  - Skin lesion [Recovered/Resolved]
  - Condition aggravated [Unknown]
  - Pyoderma gangrenosum [Unknown]
  - Sacroiliitis [Unknown]
  - Product use in unapproved indication [Unknown]
